FAERS Safety Report 4584292-4 (Version None)
Quarter: 2005Q1

REPORT INFORMATION
  Report Type: 
  Country: None (occurrence: None)
  Receive Date: 20050125
  Receipt Date: 20041102
  Transmission Date: 20050727
  Serious: No
  Sender: FDA-Public Use
  Company Number: USA041182969

PATIENT
  Sex: Female

DRUGS (2)
  1. FORTEO [Suspect]
     Indication: OSTEOPOROSIS
     Dates: start: 20040101
  2. WELCHOL [Concomitant]

REACTIONS (6)
  - ANOREXIA [None]
  - EAR PAIN [None]
  - FATIGUE [None]
  - FEELING ABNORMAL [None]
  - PHARYNGOLARYNGEAL PAIN [None]
  - WEIGHT DECREASED [None]
